FAERS Safety Report 5339261-3 (Version None)
Quarter: 2007Q2

REPORT INFORMATION
  Report Type: 
  Country: None (occurrence: None)
  Receive Date: 20070322
  Receipt Date: 20070115
  Transmission Date: 20071010
  Serious: Yes (Other)
  Sender: FDA-Public Use
  Company Number: 200614320BCC

PATIENT
  Age: 68 Year
  Sex: Male
  Weight: 117.9352 kg

DRUGS (1)
  1. ALEVE [Suspect]
     Dosage: 440 MG, HS, ORAL
     Route: 048

REACTIONS (2)
  - DIZZINESS [None]
  - HAEMATOCHEZIA [None]
